FAERS Safety Report 17099265 (Version 4)
Quarter: 2020Q4

REPORT INFORMATION
  Report Type: Spontaneous
  Country: US (occurrence: US)
  Receive Date: 20191202
  Receipt Date: 20201020
  Transmission Date: 20210113
  Serious: No
  Sender: FDA-Public Use
  Company Number: US-PFIZER INC-2019480619

PATIENT
  Age: 71 Year
  Sex: Female
  Weight: 72.11 kg

DRUGS (8)
  1. INLYTA [Suspect]
     Active Substance: AXITINIB
     Indication: SARCOMA
     Dosage: 5 MG, UNK
     Dates: start: 20191123
  2. INLYTA [Suspect]
     Active Substance: AXITINIB
     Indication: SOFT TISSUE NEOPLASM
     Dosage: 3 MG, UNK
     Route: 048
  3. INLYTA [Suspect]
     Active Substance: AXITINIB
     Dosage: 4 MG, 1X/DAY
     Dates: start: 201909
  4. METFORMIN [Concomitant]
     Active Substance: METFORMIN HYDROCHLORIDE
     Dosage: UNK
     Dates: start: 2012
  5. CELEXA [Concomitant]
     Active Substance: CITALOPRAM HYDROBROMIDE
     Dosage: UNK
     Dates: start: 2012
  6. ZIAC [Concomitant]
     Active Substance: BISOPROLOL FUMARATE\HYDROCHLOROTHIAZIDE
     Dosage: UNK
     Dates: start: 2019
  7. INLYTA [Suspect]
     Active Substance: AXITINIB
     Dosage: 1 MG
  8. NORVASC [Concomitant]
     Active Substance: AMLODIPINE BESYLATE
     Dosage: UNK
     Dates: start: 2019

REACTIONS (7)
  - Neoplasm progression [Unknown]
  - Product use in unapproved indication [Unknown]
  - Headache [Recovered/Resolved]
  - Off label use [Unknown]
  - Hypertension [Recovered/Resolved]
  - Confusional state [Unknown]
  - Diarrhoea [Recovered/Resolved]

NARRATIVE: CASE EVENT DATE: 201909
